FAERS Safety Report 6211415 (Version 2)
Quarter: 2013Q1

REPORT INFORMATION
  Report Type: Spontaneous
  Country: SE (occurrence: SE)
  Receive Date: 20070110
  Receipt Date: 20130304
  Transmission Date: 20140127
  Serious: Yes (Death, Hospitalization)
  Sender: FDA-Public Use
  Company Number: SE-JNJFOC-20061202367

PATIENT
  Age: 57 Year
  Sex: Female

DRUGS (7)
  1. REMICADE [Suspect]
     Indication: JUVENILE IDIOPATHIC ARTHRITIS
     Dosage: STRENGTH: 100 MG
     Route: 042
     Dates: start: 20000329, end: 20030116
  2. ZYRLEX [Concomitant]
     Route: 048
  3. PREDNISOLON [Concomitant]
     Route: 065
  4. BACTRIM FORTE [Concomitant]
     Dosage: 800 MG/ 160MG
     Route: 065
  5. HALCION [Concomitant]
     Dosage: 0, 25 MG
     Route: 065
  6. OESTRIOL [Concomitant]
     Route: 065
  7. LOSEC [Concomitant]
     Route: 065

REACTIONS (3)
  - Myocardial infarction [Fatal]
  - Sepsis [Fatal]
  - Cardiac arrest [Fatal]
